FAERS Safety Report 6014927-0 (Version None)
Quarter: 2008Q4

REPORT INFORMATION
  Report Type: 
  Country: None (occurrence: None)
  Receive Date: 20081219
  Receipt Date: 20081211
  Transmission Date: 20090506
  Serious: Yes (Other)
  Sender: FDA-Public Use
  Company Number: JP-ALLERGAN-0805727US

PATIENT
  Age: 6 Month
  Sex: Male

DRUGS (3)
  1. ALESION SYRUP [Suspect]
     Indication: DERMATITIS ATOPIC
     Dosage: 3 MG, QD
     Route: 048
     Dates: start: 20080404, end: 20080406
  2. LASIX [Suspect]
     Indication: OEDEMA
     Dosage: 8 MG, QD
     Route: 048
     Dates: start: 20080330, end: 20080407
  3. FROBEN [Suspect]
     Indication: PLATELET COUNT INCREASED
     Dosage: 10 MG, QD
     Route: 048
     Dates: start: 20080330, end: 20080407

REACTIONS (2)
  - DERMATITIS ATOPIC [None]
  - HEPATIC FUNCTION ABNORMAL [None]
